FAERS Safety Report 16964474 (Version 1)
Quarter: 2019Q4

REPORT INFORMATION
  Report Type: Report from Study
  Country: TW (occurrence: TW)
  Receive Date: 20191028
  Receipt Date: 20191028
  Transmission Date: 20200122
  Serious: Yes (Death, Other)
  Sender: FDA-Public Use
  Company Number: TW-KADMON PHARMACEUTICALS, LLC-KAD201910-000736

PATIENT
  Age: 59 Year
  Sex: Female

DRUGS (2)
  1. SOFOSBUVIR [Suspect]
     Active Substance: SOFOSBUVIR
     Indication: HEPATITIS C
  2. RIBAVIRIN. [Suspect]
     Active Substance: RIBAVIRIN
     Indication: HEPATITIS C

REACTIONS (2)
  - Ovarian cancer [Fatal]
  - Metastases to peritoneum [Fatal]
